FAERS Safety Report 10175080 (Version 1)
Quarter: 2014Q2

REPORT INFORMATION
  Report Type: Spontaneous
  Country: GB (occurrence: GB)
  Receive Date: 20140515
  Receipt Date: 20140515
  Transmission Date: 20141212
  Serious: Yes (Other)
  Sender: FDA-Public Use
  Company Number: PHHY2014GB058404

PATIENT
  Age: 58 Year
  Sex: Male
  Weight: 63.64 kg

DRUGS (18)
  1. NYSTATIN [Suspect]
     Dates: start: 20140417
  2. BUDESONIDE [Concomitant]
     Dates: start: 20140210
  3. CALCICHEW D3 [Concomitant]
     Dates: start: 20131209
  4. CO-TRIMOXAZOLE [Concomitant]
     Dates: start: 20140422
  5. COAL TAR SOLUTION [Concomitant]
     Dates: start: 20140210
  6. DERMOL [Concomitant]
     Dates: start: 20140113, end: 20140210
  7. DOUBLEBASE [Concomitant]
     Dates: start: 20140422, end: 20140423
  8. DOXYCYCLINE [Concomitant]
     Dates: start: 20140214
  9. EMULSIFYING OINTMENT [Concomitant]
     Dates: start: 20140113
  10. FLUTICASONE FUROATE [Concomitant]
     Dates: start: 20140113
  11. ISPAGHULA HUSK [Concomitant]
     Dates: start: 20140307
  12. LIQUID PARAFFIN [Concomitant]
     Dates: start: 20140113, end: 20140210
  13. LORATADINE [Concomitant]
     Dates: start: 20140113
  14. OMEPRAZOLE [Concomitant]
     Dates: start: 20140113
  15. PARACETAMOL [Concomitant]
     Dates: start: 20140113
  16. PEPPERMINT OIL [Concomitant]
     Dates: start: 20131209
  17. PROCHLORPERAZINE [Concomitant]
     Dates: start: 20140113
  18. SCHERIPROCT [Concomitant]
     Dates: start: 20140401

REACTIONS (4)
  - Pruritus generalised [Not Recovered/Not Resolved]
  - Palmar-plantar erythrodysaesthesia syndrome [Not Recovered/Not Resolved]
  - Skin warm [Not Recovered/Not Resolved]
  - Rash generalised [Not Recovered/Not Resolved]
